FAERS Safety Report 7702140-8 (Version None)
Quarter: 2011Q3

REPORT INFORMATION
  Report Type: 
  Country: None (occurrence: None)
  Receive Date: 20110822
  Receipt Date: 20110811
  Transmission Date: 20111222
  Serious: Yes (Life-Threatening)
  Sender: FDA-Public Use
  Company Number: TR-JNJFOC-20110806342

PATIENT
  Age: 20 Year
  Sex: Male
  Weight: 52 kg

DRUGS (3)
  1. REMICADE [Suspect]
     Route: 042
     Dates: start: 20110811, end: 20110811
  2. MESALAMINE [Concomitant]
  3. REMICADE [Suspect]
     Indication: CROHN'S DISEASE
     Route: 042

REACTIONS (5)
  - RESPIRATORY DISTRESS [None]
  - DYSPNOEA [None]
  - INFUSION RELATED REACTION [None]
  - SYNCOPE [None]
  - TACHYCARDIA [None]
